FAERS Safety Report 13158445 (Version 3)
Quarter: 2018Q3

REPORT INFORMATION
  Report Type: Spontaneous
  Country: US (occurrence: US)
  Receive Date: 20170127
  Receipt Date: 20180824
  Transmission Date: 20181010
  Serious: Yes (Hospitalization, Disabling, Other)
  Sender: FDA-Public Use
  Company Number: US-ASTRAZENECA-2017SE08553

PATIENT
  Sex: Male
  Weight: 76.7 kg

DRUGS (2)
  1. BRILINTA [Suspect]
     Active Substance: TICAGRELOR
     Indication: STENT PLACEMENT
     Route: 048
     Dates: start: 20160621
  2. BRILINTA [Suspect]
     Active Substance: TICAGRELOR
     Indication: MYOCARDIAL INFARCTION
     Route: 048
     Dates: start: 20160621

REACTIONS (6)
  - Faeces discoloured [Unknown]
  - Gallbladder perforation [Unknown]
  - Internal haemorrhage [Unknown]
  - Infection [Unknown]
  - Ulcer haemorrhage [Unknown]
  - Haematemesis [Unknown]
